FAERS Safety Report 24069418 (Version 1)
Quarter: 2024Q3

REPORT INFORMATION
  Report Type: Spontaneous
  Country: US (occurrence: US)
  Receive Date: 20240710
  Receipt Date: 20240710
  Transmission Date: 20241017
  Serious: No
  Sender: ROCHE
  Company Number: US-ROCHE-3404833

PATIENT
  Sex: Female
  Weight: 58.97 kg

DRUGS (1)
  1. PHESGO [Suspect]
     Active Substance: HYALURONIDASE-ZZXF\PERTUZUMAB\TRASTUZUMAB
     Indication: Breast cancer
     Route: 042

REACTIONS (5)
  - Off label use [Unknown]
  - Fatigue [Unknown]
  - Memory impairment [Unknown]
  - Hypertension [Unknown]
  - Diarrhoea [Recovering/Resolving]
